FAERS Safety Report 5317189-2 (Version None)
Quarter: 2007Q2

REPORT INFORMATION
  Report Type: 
  Country: None (occurrence: None)
  Receive Date: 20070504
  Receipt Date: 20070424
  Transmission Date: 20071010
  Serious: Yes (Death, Hospitalization, Disabling, Other)
  Sender: FDA-Public Use
  Company Number: US-PFIZER INC-2007017663

PATIENT
  Age: 82 Year
  Sex: Female

DRUGS (9)
  1. TIKOSYN [Suspect]
     Indication: ATRIAL FIBRILLATION
  2. NEURONTIN [Suspect]
     Indication: BACK PAIN
  3. NIFEDIPINE [Suspect]
     Indication: HYPERTENSION
  4. DIURETICS [Concomitant]
  5. PAXIL [Concomitant]
  6. KLOR-CON [Concomitant]
  7. PROTONIX [Concomitant]
  8. FOSAMAX [Concomitant]
  9. MIACALCIN [Concomitant]

REACTIONS (13)
  - CARDIAC FAILURE [None]
  - CEREBROVASCULAR ACCIDENT [None]
  - CLOSTRIDIAL INFECTION [None]
  - DYSPHAGIA [None]
  - ELECTROCARDIOGRAM QT PROLONGED [None]
  - HIP FRACTURE [None]
  - HOSPITALISATION [None]
  - IMMUNE SYSTEM DISORDER [None]
  - INFECTION [None]
  - ORTHOSTATIC HYPOTENSION [None]
  - PAIN [None]
  - SEPSIS [None]
  - URINARY TRACT INFECTION [None]
